FAERS Safety Report 8154892-3 (Version None)
Quarter: 2012Q1

REPORT INFORMATION
  Report Type: 
  Country: None (occurrence: None)
  Receive Date: 20120221
  Receipt Date: 20120215
  Transmission Date: 20120608
  Serious: Yes (Other)
  Sender: FDA-Public Use
  Company Number: PHEH2012US003877

PATIENT
  Age: 60 Year
  Sex: Female

DRUGS (1)
  1. DIOVAN HCT [Suspect]

REACTIONS (1)
  - NEOPLASM MALIGNANT [None]
